FAERS Safety Report 8547068 (Version 2)
Quarter: 2013Q2

REPORT INFORMATION
  Report Type: Spontaneous
  Country: US (occurrence: None)
  Receive Date: 20120315
  Receipt Date: 20120703
  Transmission Date: 20140414
  Serious: Yes (Other)
  Sender: FDA-Public Use
  Company Number: PHHY2011US28928

PATIENT
  Age: 45 Year
  Sex: Female

DRUGS (1)
  1. GILENYA [Suspect]
     Indication: MULTIPLE SCLEROSIS
     Route: 048
     Dates: start: 20110301

REACTIONS (5)
  - PYREXIA [None]
  - NASOPHARYNGITIS [None]
  - COUGH [None]
  - CONCOMITANT DISEASE AGGRAVATED [None]
  - White blood cell count decreased [None]
